FAERS Safety Report 10934707 (Version 1)
Quarter: 2015Q1

REPORT INFORMATION
  Report Type: Spontaneous
  Country: US (occurrence: US)
  Receive Date: 20150320
  Receipt Date: 20150320
  Transmission Date: 20150721
  Serious: Yes (Hospitalization, Other)
  Sender: FDA-Public Use
  Company Number: US-SUN PHARMACEUTICAL INDUSTRIES LTD-2015SUN00814

PATIENT
  Age: 71 Year
  Sex: Male

DRUGS (2)
  1. PROTONIX [Concomitant]
     Active Substance: PANTOPRAZOLE SODIUM
     Indication: OESOPHAGEAL VARICES HAEMORRHAGE
     Route: 041
  2. OCTREOTIDE ACETATE INJECTION 100MCG/ML [Suspect]
     Active Substance: OCTREOTIDE ACETATE
     Indication: OESOPHAGEAL VARICES HAEMORRHAGE
     Route: 041

REACTIONS (2)
  - Sinus bradycardia [Recovered/Resolved]
  - Hypothermia [Recovered/Resolved]
